FAERS Safety Report 7353542-3 (Version None)
Quarter: 2011Q1

REPORT INFORMATION
  Report Type: 
  Country: None (occurrence: None)
  Receive Date: 20110315
  Receipt Date: 20110308
  Transmission Date: 20110831
  Serious: Yes (Hospitalization)
  Sender: FDA-Public Use
  Company Number: KR-ELI_LILLY_AND_COMPANY-KR201102007578

PATIENT
  Sex: Male
  Weight: 84.5 kg

DRUGS (12)
  1. ZOLPIDEM TARTRATE [Concomitant]
     Dates: start: 20110112
  2. POVIDONE IODINE [Concomitant]
     Dates: start: 20110130
  3. METOCLOPRAMIDE HYDROCHLORIDE [Concomitant]
     Dates: start: 20110223
  4. BENPROPERINE PHOSPHATE [Concomitant]
     Dates: start: 20110105
  5. MEGESTROL ACETATE [Concomitant]
     Dates: start: 20110112
  6. CODEINE SULFATE [Concomitant]
     Dates: start: 20110131
  7. BENZYDAMINE HYDROCHLORIDE [Concomitant]
     Dates: start: 20110130
  8. GEMCITABINE HYDROCHLORIDE [Suspect]
     Indication: NON-SMALL CELL LUNG CANCER STAGE IV
     Dosage: 1900 MG, OTHER
     Dates: start: 20110105, end: 20110223
  9. CISPLATIN [Suspect]
     Indication: NON-SMALL CELL LUNG CANCER STAGE IV
     Dosage: 112 MG, OTHER
     Dates: start: 20110105, end: 20110223
  10. COUGH SYRUP [Concomitant]
     Dates: start: 20110105
  11. ULTRACET [Concomitant]
     Dates: start: 20110131
  12. CIMETIDINE [Concomitant]
     Dates: start: 20110223

REACTIONS (1)
  - SEPSIS [None]
